FAERS Safety Report 21310727 (Version 1)
Quarter: 2022Q3

REPORT INFORMATION
  Report Type: Report from Study
  Country: US (occurrence: US)
  Receive Date: 20220909
  Receipt Date: 20220909
  Transmission Date: 20221027
  Serious: No
  Sender: FDA-Public Use
  Company Number: US-NOVARTISTESTPH-NVSC2022US202957

PATIENT
  Sex: Male

DRUGS (1)
  1. ZARXIO [Suspect]
     Active Substance: FILGRASTIM-SNDZ
     Indication: Product used for unknown indication
     Dosage: 0.8 ML (INJECT 0.8ML INTO THE SKIN DAILY FOR 5 DAYS EVERY 14 DAYS)
     Route: 058
     Dates: start: 20220824, end: 20220906

REACTIONS (1)
  - Aphasia [Unknown]
